FAERS Safety Report 6961481-2 (Version None)
Quarter: 2010Q3

REPORT INFORMATION
  Report Type: 
  Country: None (occurrence: None)
  Receive Date: 20100901
  Receipt Date: 20100826
  Transmission Date: 20110219
  Serious: Yes (Hospitalization)
  Sender: FDA-Public Use
  Company Number: PHHY2010US56944

PATIENT

DRUGS (1)
  1. CLOZARIL [Suspect]

REACTIONS (4)
  - LUNG INFILTRATION [None]
  - PYREXIA [None]
  - TACHYCARDIA [None]
  - TROPONIN INCREASED [None]
